FAERS Safety Report 13641489 (Version 1)
Quarter: 2017Q2

REPORT INFORMATION
  Report Type: Spontaneous
  Country: US (occurrence: US)
  Receive Date: 20170610
  Receipt Date: 20170610
  Transmission Date: 20170830
  Serious: Yes (Life-Threatening, Hospitalization, Disabling, Other)
  Sender: FDA-Public Use
  Company Number: None

PATIENT
  Age: 63 Year
  Sex: Male
  Weight: 140.4 kg

DRUGS (10)
  1. METEOR IN [Concomitant]
  2. DICLOFINAC [Concomitant]
  3. FOEROSIMIDE [Concomitant]
  4. DAILY VITAMIN [Concomitant]
     Active Substance: VITAMINS
  5. OXYCODONE [Concomitant]
     Active Substance: OXYCODONE
  6. LYRICA [Suspect]
     Active Substance: PREGABALIN
     Indication: DIABETIC NEUROPATHY
     Route: 048
     Dates: end: 20170514
  7. METE PROPYL [Concomitant]
  8. NUVIGIL [Concomitant]
     Active Substance: ARMODAFINIL
  9. CRANBERRY SUPPLEMENT [Concomitant]
  10. VITAMIN E [Concomitant]
     Active Substance: .ALPHA.-TOCOPHEROL

REACTIONS (3)
  - Finger amputation [None]
  - Infection [None]
  - Blister [None]

NARRATIVE: CASE EVENT DATE: 20170113
